FAERS Safety Report 21774113 (Version 2)
Quarter: 2023Q1

REPORT INFORMATION
  Report Type: Spontaneous
  Country: US (occurrence: US)
  Receive Date: 20221223
  Receipt Date: 20230326
  Transmission Date: 20230418
  Serious: Yes (Death, Other)
  Sender: FDA-Public Use
  Company Number: US-CELLTRION INC.-2022US021364

PATIENT

DRUGS (2)
  1. INFLECTRA [Suspect]
     Active Substance: INFLIXIMAB-DYYB
     Indication: Crohn^s disease
     Dosage: EVERY 6 WEEKS
     Route: 065
     Dates: start: 202108, end: 202108
  2. REMICADE [Suspect]
     Active Substance: INFLIXIMAB
     Indication: Crohn^s disease
     Dosage: WAS ON REMICADE FOR 20 YEARS
     Route: 065
     Dates: end: 202207

REACTIONS (3)
  - Basal cell carcinoma [Fatal]
  - Crohn^s disease [Unknown]
  - Therapeutic response changed [Unknown]
